FAERS Safety Report 8822350 (Version 2)
Quarter: 2012Q4

REPORT INFORMATION
  Report Type: 
  Country: US (occurrence: US)
  Receive Date: 20121003
  Receipt Date: 20121027
  Transmission Date: 20130627
  Serious: No
  Sender: FDA-Public Use
  Company Number: US-009507513-1209USA008103

PATIENT
  Age: 43 Year
  Sex: Female
  Weight: 88.43 kg

DRUGS (2)
  1. IMPLANON [Suspect]
     Dosage: UNK
     Dates: start: 20120906
  2. IMPLANON [Suspect]
     Dosage: 1 DF, UNK
     Route: 059
     Dates: start: 20120906

REACTIONS (3)
  - Complication of device insertion [Unknown]
  - Device deployment issue [Unknown]
  - No adverse event [Unknown]
